FAERS Safety Report 14603611 (Version 4)
Quarter: 2018Q2

REPORT INFORMATION
  Report Type: Report from Study
  Country: US (occurrence: US)
  Receive Date: 20180306
  Receipt Date: 20180511
  Transmission Date: 20180711
  Serious: Yes (Life-Threatening, Hospitalization)
  Sender: FDA-Public Use
  Company Number: PHHO2017US009121

PATIENT
  Age: 39 Year
  Sex: Female

DRUGS (24)
  1. INC424A [Suspect]
     Active Substance: RUXOLITINIB
     Dosage: 5 MG, BID
     Route: 048
     Dates: start: 20170321, end: 20170323
  2. METHYLPREDNISOLONE. [Suspect]
     Active Substance: METHYLPREDNISOLONE
     Dosage: 28 MG, QD
     Route: 042
     Dates: start: 20170607, end: 20170607
  3. PREDNISONE. [Suspect]
     Active Substance: PREDNISONE
     Dosage: 30 MG, QD (Q24H)
     Route: 048
     Dates: start: 20170523, end: 20170524
  4. PREDNISONE. [Suspect]
     Active Substance: PREDNISONE
     Dosage: 40 MG, QD (Q24H)
     Route: 048
     Dates: start: 20170525, end: 20170529
  5. PREDNISONE. [Suspect]
     Active Substance: PREDNISONE
     Dosage: 30 MG, QD (Q24H)
     Route: 048
     Dates: start: 20170608, end: 20170611
  6. MARIBAVIR [Suspect]
     Active Substance: MARIBAVIR
     Indication: MENTAL STATUS CHANGES
     Dosage: 400 MG, BID
     Route: 065
     Dates: start: 20170630
  7. MARIBAVIR [Suspect]
     Active Substance: MARIBAVIR
     Indication: DELIRIUM
  8. METHYLPREDNISOLONE. [Suspect]
     Active Substance: METHYLPREDNISOLONE
     Dosage: 80 MG, QD
     Route: 042
     Dates: start: 20170713, end: 20170713
  9. METHYLPREDNISOLONE. [Suspect]
     Active Substance: METHYLPREDNISOLONE
     Dosage: DOSE REDUCED
     Route: 042
     Dates: start: 20170715
  10. INC424A [Suspect]
     Active Substance: RUXOLITINIB
     Dosage: 10 MG, BID
     Route: 048
     Dates: start: 20170228, end: 20170320
  11. PREDNISONE. [Suspect]
     Active Substance: PREDNISONE
     Dosage: 20 MG, QD
     Route: 048
     Dates: start: 20170715, end: 20170717
  12. INC424A [Suspect]
     Active Substance: RUXOLITINIB
     Indication: GRAFT VERSUS HOST DISEASE
     Dosage: 5 MG, BID
     Route: 048
     Dates: start: 20170224, end: 20170227
  13. INC424A [Suspect]
     Active Substance: RUXOLITINIB
     Dosage: 5 MG, BID
     Route: 048
     Dates: start: 20170717
  14. PREDNISONE. [Suspect]
     Active Substance: PREDNISONE
     Dosage: 40 MG, QD (Q24H)
     Route: 048
     Dates: start: 20170516, end: 20170522
  15. DOXYCYCLINE. [Concomitant]
     Active Substance: DOXYCYCLINE
     Indication: URINARY TRACT INFECTION ENTEROCOCCAL
     Dosage: UNK
     Route: 065
     Dates: start: 20170406, end: 20170409
  16. INC424A [Suspect]
     Active Substance: RUXOLITINIB
     Dosage: 10 MG, BID
     Route: 048
     Dates: start: 20170324, end: 20170716
  17. METHYLPREDNISOLONE. [Suspect]
     Active Substance: METHYLPREDNISOLONE
     Indication: GRAFT VERSUS HOST DISEASE
     Dosage: 50 MG, QD (Q24 HOURS)
     Route: 042
     Dates: start: 20170502, end: 20170508
  18. METHYLPREDNISOLONE. [Suspect]
     Active Substance: METHYLPREDNISOLONE
     Dosage: 30 MG, QD
     Route: 042
     Dates: start: 20170629, end: 20170629
  19. PREDNISONE. [Suspect]
     Active Substance: PREDNISONE
     Indication: GRAFT VERSUS HOST DISEASE
     Dosage: 50 MG, QD (Q24H)
     Route: 048
     Dates: start: 20170509, end: 20170515
  20. MARIBAVIR [Suspect]
     Active Substance: MARIBAVIR
     Indication: FAILURE TO THRIVE
  21. PREDNISONE. [Suspect]
     Active Substance: PREDNISONE
     Dosage: 35 MG, QD (Q24H)
     Route: 048
     Dates: start: 20170530, end: 20170606
  22. METHYLPREDNISOLONE. [Suspect]
     Active Substance: METHYLPREDNISOLONE
     Dosage: 24 MG, QD
     Route: 042
     Dates: start: 20170608, end: 20170609
  23. PREDNISONE. [Suspect]
     Active Substance: PREDNISONE
     Dosage: 25 MG, QD (Q24H)
     Route: 048
     Dates: start: 20170612
  24. PREDNISONE. [Suspect]
     Active Substance: PREDNISONE
     Dosage: 20 MG, QD (Q24H)
     Route: 048
     Dates: start: 20170630, end: 20170712

REACTIONS (5)
  - Failure to thrive [Not Recovered/Not Resolved]
  - Lower gastrointestinal haemorrhage [Not Recovered/Not Resolved]
  - Mental status changes [Not Recovered/Not Resolved]
  - Bacteraemia [Recovered/Resolved]
  - Pneumatosis intestinalis [Recovered/Resolved]

NARRATIVE: CASE EVENT DATE: 20170602
